FAERS Safety Report 18169865 (Version 1)
Quarter: 2020Q3

REPORT INFORMATION
  Report Type: Spontaneous
  Country: CA (occurrence: CA)
  Receive Date: 20200819
  Receipt Date: 20200819
  Transmission Date: 20201103
  Serious: Yes (Death, Other)
  Sender: FDA-Public Use
  Company Number: CA-ACCORD-195723

PATIENT
  Age: 55 Year
  Sex: Male

DRUGS (6)
  1. IMATINIB/IMATINIB MESILATE [Suspect]
     Active Substance: IMATINIB
     Indication: ACUTE MEGAKARYOCYTIC LEUKAEMIA
     Route: 065
  2. CYTARABINE/CYTARABINE HYDROCHLORIDE/CYTARABINE OCFOSFATE [Suspect]
     Active Substance: CYTARABINE
     Indication: ACUTE MEGAKARYOCYTIC LEUKAEMIA
     Route: 065
  3. ETOPOSIDE. [Suspect]
     Active Substance: ETOPOSIDE
     Indication: ACUTE MEGAKARYOCYTIC LEUKAEMIA
     Route: 065
  4. ANTITHYMOCYTE IMMUNOGLOBULIN [Suspect]
     Active Substance: THYMOCYTE IMMUNE GLOBULIN NOS
     Indication: ACUTE MEGAKARYOCYTIC LEUKAEMIA
     Route: 065
  5. IDARUBICIN [Suspect]
     Active Substance: IDARUBICIN
     Indication: PRODUCT USED FOR UNKNOWN INDICATION
     Route: 065
  6. TASIGNA [Suspect]
     Active Substance: NILOTINIB
     Indication: PRODUCT USED FOR UNKNOWN INDICATION
     Route: 065

REACTIONS (3)
  - Intentional product use issue [Unknown]
  - Neoplasm progression [Fatal]
  - Fungal infection [Fatal]
